FAERS Safety Report 8042113-1 (Version None)
Quarter: 2012Q1

REPORT INFORMATION
  Report Type: 
  Country: None (occurrence: None)
  Receive Date: 20120112
  Receipt Date: 20120105
  Transmission Date: 20120608
  Serious: Yes (Death)
  Sender: FDA-Public Use
  Company Number: US-VERTEX PHARMACEUTICALS INC.-AE-2011-004921

PATIENT
  Sex: Female

DRUGS (6)
  1. PEGASYS [Concomitant]
     Indication: HEPATITIS C
     Route: 058
     Dates: start: 20111025
  2. SOMA [Concomitant]
  3. FLONASE [Concomitant]
  4. AMLODIPINE [Concomitant]
  5. INCIVEK [Suspect]
     Indication: HEPATITIS C
     Route: 048
     Dates: start: 20111025
  6. RIBAVIRIN [Concomitant]
     Indication: HEPATITIS C
     Dates: start: 20111025

REACTIONS (1)
  - ACCIDENTAL OVERDOSE [None]
